FAERS Safety Report 12156673 (Version 3)
Quarter: 2017Q1

REPORT INFORMATION
  Report Type: Spontaneous
  Country: US (occurrence: US)
  Receive Date: 20160307
  Receipt Date: 20170313
  Transmission Date: 20170428
  Serious: Yes (Hospitalization)
  Sender: FDA-Public Use
  Company Number: US-ACTELION-A-US2016-131741

PATIENT
  Age: 60 Year
  Sex: Male

DRUGS (6)
  1. LASIX [Concomitant]
     Active Substance: FUROSEMIDE
     Dosage: 80 MG, BID
     Route: 048
  2. RAMIPRIL. [Concomitant]
     Active Substance: RAMIPRIL
     Dosage: 10 MG, QID
     Route: 048
  3. OPSUMIT [Suspect]
     Active Substance: MACITENTAN
     Indication: PULMONARY HYPERTENSION
     Dosage: 10 MG, QD
     Route: 048
     Dates: start: 20160122, end: 20160420
  4. PRAVASTATIN SODIUM. [Concomitant]
     Active Substance: PRAVASTATIN SODIUM
  5. ASPIRIN. [Concomitant]
     Active Substance: ASPIRIN
     Dosage: 81 MG, QD
     Route: 048
  6. POTASSIUM CHLORIDE. [Concomitant]
     Active Substance: POTASSIUM CHLORIDE

REACTIONS (12)
  - Dyspnoea [Recovering/Resolving]
  - Gastrointestinal haemorrhage [Recovering/Resolving]
  - Fatigue [Recovering/Resolving]
  - Blood bilirubin increased [Unknown]
  - Cardiac failure congestive [Recovering/Resolving]
  - Blood alkaline phosphatase increased [Unknown]
  - Oedema peripheral [Recovering/Resolving]
  - Angina unstable [Recovering/Resolving]
  - Face oedema [Recovering/Resolving]
  - Hepatic enzyme increased [Unknown]
  - Abdominal distension [Unknown]
  - Oedema [Recovering/Resolving]

NARRATIVE: CASE EVENT DATE: 20160212
